FAERS Safety Report 10191971 (Version 1)
Quarter: 2014Q2

REPORT INFORMATION
  Report Type: Spontaneous
  Country: IT (occurrence: IT)
  Receive Date: 20140523
  Receipt Date: 20140523
  Transmission Date: 20141212
  Serious: Yes (Other)
  Sender: FDA-Public Use
  Company Number: IT-ACTAVIS-2014-10307

PATIENT
  Age: 72 Year
  Sex: Female

DRUGS (4)
  1. IRINOTECAN (UNKNOWN) [Suspect]
     Indication: PANCREATIC CARCINOMA
     Dosage: 270 MG, CYCLICAL
     Route: 017
     Dates: start: 20140331, end: 20140423
  2. OXALIPLATIN [Suspect]
     Indication: PANCREATIC CARCINOMA
     Dosage: 125 MG, CYCLICAL
     Route: 017
     Dates: start: 20140331, end: 20140423
  3. FLUOROURACIL                       /00098802/ [Suspect]
     Indication: PANCREATIC CARCINOMA
     Dosage: 3000 MG, CYCLICAL
     Route: 017
     Dates: start: 20140331, end: 20140423
  4. LEDERFOLIN [Concomitant]
     Indication: PRODUCT USED FOR UNKNOWN INDICATION
     Dosage: 300 MG, UNKNOWN
     Route: 017

REACTIONS (5)
  - Blood bilirubin increased [Recovered/Resolved]
  - Leukopenia [Recovered/Resolved]
  - Neutropenia [Recovered/Resolved]
  - Pyrexia [Recovered/Resolved]
  - Transaminases increased [Recovered/Resolved]
